FAERS Safety Report 6186756-9 (Version None)
Quarter: 2009Q2

REPORT INFORMATION
  Report Type: 
  Country: None (occurrence: None)
  Receive Date: 20090508
  Receipt Date: 20090417
  Transmission Date: 20091009
  Serious: Yes (Hospitalization)
  Sender: FDA-Public Use
  Company Number: 09-045

PATIENT
  Sex: Male
  Weight: 9.9791 kg

DRUGS (1)
  1. CEFTRIAXONE [Suspect]
     Indication: CELLULITIS
     Dosage: 250 MG ONCE AND IM
     Route: 030
     Dates: start: 20090404, end: 20090404

REACTIONS (3)
  - EXPIRED DRUG ADMINISTERED [None]
  - NO THERAPEUTIC RESPONSE [None]
  - STAPHYLOCOCCAL INFECTION [None]
